FAERS Safety Report 22299147 (Version 1)
Quarter: 2023Q2

REPORT INFORMATION
  Report Type: Spontaneous
  Country: US (occurrence: None)
  Receive Date: 20230508
  Receipt Date: 20230508
  Transmission Date: 20230722
  Serious: No
  Sender: FDA-Public Use
  Company Number: None

PATIENT
  Sex: Male

DRUGS (1)
  1. HUMIRA [Suspect]
     Active Substance: ADALIMUMAB
     Dosage: 160MG DAY 1 AND 80MG OTHER SUBCUTANEOUS? ?DATE OF  USE: RESTART
     Route: 058

REACTIONS (3)
  - Therapy interrupted [None]
  - Adverse drug reaction [None]
  - Furuncle [None]
